FAERS Safety Report 6103525-6 (Version None)
Quarter: 2009Q1

REPORT INFORMATION
  Report Type: 
  Country: None (occurrence: None)
  Receive Date: 20090305
  Receipt Date: 20090202
  Transmission Date: 20090719
  Serious: No
  Sender: FDA-Public Use
  Company Number: US-BAYER-200811150BCC

PATIENT
  Age: 16 Year
  Sex: Female
  Weight: 61 kg

DRUGS (2)
  1. ALEVE (CAPLET) [Suspect]
     Indication: BACK PAIN
     Dosage: UNIT DOSE: 220 MG
     Route: 048
     Dates: start: 20080309, end: 20080309
  2. LEGATRIN PM [Suspect]
     Dosage: AS USED: 1 DF  UNIT DOSE: 1 DF
     Route: 048

REACTIONS (4)
  - ABDOMINAL DISCOMFORT [None]
  - CHEST PAIN [None]
  - ERUCTATION [None]
  - VOMITING [None]
